FAERS Safety Report 25220322 (Version 4)
Quarter: 2025Q2

REPORT INFORMATION
  Report Type: Spontaneous
  Country: CO (occurrence: CO)
  Receive Date: 20250421
  Receipt Date: 20250609
  Transmission Date: 20250716
  Serious: No
  Sender: PFIZER
  Company Number: CO-PFIZER INC-PV202500041176

PATIENT
  Sex: Male

DRUGS (2)
  1. GENOTROPIN [Suspect]
     Active Substance: SOMATROPIN
     Dosage: 1.2 MG, DAILY
  2. GENOTROPIN [Suspect]
     Active Substance: SOMATROPIN
     Dosage: 2 MG, DAILY

REACTIONS (4)
  - Drug dose omission by device [Unknown]
  - Device defective [Unknown]
  - Device information output issue [Unknown]
  - Device power source issue [Unknown]
